FAERS Safety Report 21259105 (Version 3)
Quarter: 2022Q4

REPORT INFORMATION
  Report Type: Spontaneous
  Country: CN (occurrence: CN)
  Receive Date: 20220826
  Receipt Date: 20221004
  Transmission Date: 20230113
  Serious: Yes (Other)
  Sender: FDA-Public Use
  Company Number: ALC2022CN003944

PATIENT
  Age: 54 Year
  Sex: Female

DRUGS (4)
  1. AZOPT [Suspect]
     Active Substance: BRINZOLAMIDE
     Indication: Glaucoma
     Dosage: 5ML: 50MG (1%),ONCE IN THE EVENING OF THE FIRST DAY AND ONCE IN THE MORNING OF THE NEXT DAY (START D
     Route: 065
     Dates: start: 202110
  2. AZOPT [Suspect]
     Active Substance: BRINZOLAMIDE
     Indication: Ocular hypertension
  3. UNSPECIFIED INGREDIENT [Concomitant]
     Active Substance: UNSPECIFIED INGREDIENT
     Indication: Product used for unknown indication
     Dosage: UNK
     Route: 047
  4. PEARL [Concomitant]
     Indication: Product used for unknown indication
     Dosage: UNK,
     Route: 065
     Dates: start: 2021

REACTIONS (6)
  - Blindness unilateral [Not Recovered/Not Resolved]
  - Angina pectoris [Recovered/Resolved]
  - Eye swelling [Recovering/Resolving]
  - Suspected counterfeit product [Unknown]
  - Ocular hyperaemia [Recovering/Resolving]
  - Eye pain [Recovering/Resolving]

NARRATIVE: CASE EVENT DATE: 20211001
